FAERS Safety Report 13599415 (Version 1)
Quarter: 2017Q2

REPORT INFORMATION
  Report Type: Spontaneous
  Country: BR (occurrence: BR)
  Receive Date: 20170531
  Receipt Date: 20170531
  Transmission Date: 20170830
  Serious: Yes (Hospitalization, Other)
  Sender: FDA-Public Use
  Company Number: BR-HTU-2017BR013154

PATIENT
  Age: 79 Year
  Sex: Male
  Weight: 79 kg

DRUGS (7)
  1. LOSARTAN. [Suspect]
     Active Substance: LOSARTAN
     Dosage: 50 MG, SINGLE
     Dates: start: 20170123, end: 20170123
  2. RANITIDINE. [Concomitant]
     Active Substance: RANITIDINE
     Dosage: 50 MG, UNK
     Dates: start: 20170123, end: 20170123
  3. SYNTHROID [Concomitant]
     Active Substance: LEVOTHYROXINE SODIUM
     Indication: HYPOTHYROIDISM
     Dosage: 50 ?G, UNK
     Dates: start: 20170123, end: 20170123
  4. ONICIT [Suspect]
     Active Substance: PALONOSETRON HYDROCHLORIDE
     Dosage: 0.25 MG, SINGLE
     Dates: start: 20170123, end: 20170123
  5. OXALIBBS [Suspect]
     Active Substance: OXALIPLATIN
     Indication: COLON CANCER
     Dosage: 100 MG, UNK
     Route: 042
     Dates: start: 20170123, end: 20170123
  6. OXALIBBS [Suspect]
     Active Substance: OXALIPLATIN
     Indication: COLON CANCER
     Dosage: 50 MG, UNK
     Route: 042
     Dates: start: 20170123, end: 20170123
  7. XELODA [Concomitant]
     Active Substance: CAPECITABINE
     Indication: COLON CANCER
     Dosage: 4 DF, UNK
     Dates: start: 20170123, end: 20170123

REACTIONS (6)
  - Oxygen saturation decreased [Unknown]
  - Body temperature decreased [Recovered/Resolved]
  - Respiratory failure [Unknown]
  - Hypertension [Unknown]
  - Tremor [Recovered/Resolved]
  - Feeling cold [Recovered/Resolved]

NARRATIVE: CASE EVENT DATE: 20170123
